FAERS Safety Report 16837995 (Version 1)
Quarter: 2019Q3

REPORT INFORMATION
  Report Type: Report from Study
  Country: US (occurrence: US)
  Receive Date: 20190923
  Receipt Date: 20190923
  Transmission Date: 20191005
  Serious: Yes (Other)
  Sender: FDA-Public Use
  Company Number: US-ROCHE-2410791

PATIENT
  Age: 53 Year
  Sex: Male

DRUGS (1)
  1. OCREVUS [Suspect]
     Active Substance: OCRELIZUMAB
     Indication: MULTIPLE SCLEROSIS
     Route: 065
     Dates: start: 201903

REACTIONS (6)
  - Fall [Unknown]
  - Malaise [Unknown]
  - Gangrene [Unknown]
  - Vomiting [Unknown]
  - Pain [Unknown]
  - Gallbladder rupture [Unknown]

NARRATIVE: CASE EVENT DATE: 201905
